FAERS Safety Report 24184711 (Version 1)
Quarter: 2024Q3

REPORT INFORMATION
  Report Type: Spontaneous
  Country: CN (occurrence: CN)
  Receive Date: 20240807
  Receipt Date: 20240807
  Transmission Date: 20241017
  Serious: Yes (Life-Threatening)
  Sender: PAREXEL
  Company Number: CN-SHANGHAI JUNSHI BIOSCIENCES CO., LTD.-CN2024010932

PATIENT
  Age: 58 Year
  Sex: Male

DRUGS (3)
  1. TORIPALIMAB [Suspect]
     Active Substance: TORIPALIMAB
     Indication: Lung neoplasm
     Dosage: 240 MG (D1)
     Route: 041
     Dates: start: 20240702, end: 20240702
  2. PACLITAXEL [Suspect]
     Active Substance: PACLITAXEL
     Indication: Lung neoplasm
     Dosage: 500 MG (D1, 260MG/M2)
     Route: 041
     Dates: start: 20240702, end: 20240702
  3. CISPLATIN [Suspect]
     Active Substance: CISPLATIN
     Indication: Lung neoplasm
     Dosage: 140 MG (D1, 70MG/M2)
     Dates: start: 20240702, end: 20240702

REACTIONS (1)
  - Granulocyte count decreased [Recovered/Resolved]

NARRATIVE: CASE EVENT DATE: 20240716
